FAERS Safety Report 8128909-6 (Version None)
Quarter: 2012Q1

REPORT INFORMATION
  Report Type: 
  Country: None (occurrence: None)
  Receive Date: 20120210
  Receipt Date: 20110512
  Transmission Date: 20120608
  Serious: No
  Sender: FDA-Public Use
  Company Number: US-BRISTOL-MYERS SQUIBB COMPANY-15740376

PATIENT
  Age: 57 Year
  Sex: Female

DRUGS (3)
  1. FOSAMAX [Concomitant]
  2. ORENCIA [Suspect]
     Dosage: NO OF INF:9
     Dates: start: 20100901
  3. PREDNISONE TAB [Concomitant]

REACTIONS (2)
  - FURUNCLE [None]
  - DRUG INEFFECTIVE [None]
